FAERS Safety Report 10362031 (Version 3)
Quarter: 2015Q1

REPORT INFORMATION
  Report Type: Spontaneous
  Country: US (occurrence: US)
  Receive Date: 20140805
  Receipt Date: 20150216
  Transmission Date: 20150720
  Serious: Yes (Hospitalization, Other)
  Sender: FDA-Public Use
  Company Number: US-BAYER-2014-113660

PATIENT
  Age: 25 Year
  Sex: Female
  Weight: 55.33 kg

DRUGS (3)
  1. MIRENA [Suspect]
     Active Substance: LEVONORGESTREL
     Indication: CONTRACEPTION
     Dosage: 20 MCG/24HR, CONT
     Route: 015
     Dates: start: 20090610, end: 20120928
  2. AMITRIPTYLINE [Concomitant]
     Active Substance: AMITRIPTYLINE
     Indication: DEPRESSION
     Dosage: UNK
     Dates: start: 2010, end: 201406
  3. AMITRIPTYLINE [Concomitant]
     Active Substance: AMITRIPTYLINE
     Indication: INSOMNIA

REACTIONS (18)
  - Emotional distress [None]
  - White blood cell count decreased [None]
  - Hyperthyroidism [None]
  - Depression [None]
  - Device issue [None]
  - Injury [None]
  - Pain [None]
  - Fatigue [None]
  - Paraesthesia [None]
  - Device dislocation [None]
  - Red blood cell count increased [None]
  - Pyrexia [None]
  - Uterine perforation [None]
  - Genital haemorrhage [None]
  - Anxiety [None]
  - Nervousness [None]
  - Gastrointestinal injury [None]
  - Abdominal neoplasm [None]

NARRATIVE: CASE EVENT DATE: 201204
